FAERS Safety Report 11856787 (Version 2)
Quarter: 2015Q4

REPORT INFORMATION
  Report Type: Spontaneous
  Country: US (occurrence: US)
  Receive Date: 20151221
  Receipt Date: 20151222
  Transmission Date: 20160305
  Serious: No
  Sender: FDA-Public Use
  Company Number: US-LEO PHARMA-239144

PATIENT
  Sex: Female

DRUGS (1)
  1. CALCIPOTRIENE CREAM 0.005% [Suspect]
     Active Substance: CALCIPOTRIENE
     Indication: PRODUCT USED FOR UNKNOWN INDICATION
     Dosage: APPLIED TO AFFECTED AREA TWICE A DAY
     Dates: start: 20151118, end: 20151118

REACTIONS (5)
  - Skin burning sensation [Unknown]
  - Skin discolouration [Not Recovered/Not Resolved]
  - Blister [Unknown]
  - Skin exfoliation [Unknown]
  - Pruritus [Recovering/Resolving]
